FAERS Safety Report 22661103 (Version 1)
Quarter: 2023Q2

REPORT INFORMATION
  Report Type: Report from Study
  Country: US (occurrence: US)
  Receive Date: 20230630
  Receipt Date: 20230630
  Transmission Date: 20230722
  Serious: Yes (Other)
  Sender: FDA-Public Use
  Company Number: US-JAZZ PHARMACEUTICALS-2023-US-008236

PATIENT
  Sex: Female
  Weight: 113.4 kg

DRUGS (1)
  1. EPIDIOLEX [Suspect]
     Active Substance: CANNABIDIOL
     Indication: Epilepsy
     Dosage: 1.75 MILLILITER, BID
     Route: 048

REACTIONS (3)
  - Seizure [Unknown]
  - Cough [Unknown]
  - Product administration interrupted [Unknown]
